FAERS Safety Report 13662534 (Version 2)
Quarter: 2017Q3

REPORT INFORMATION
  Report Type: Spontaneous
  Country: JP (occurrence: JP)
  Receive Date: 20170617
  Receipt Date: 20170705
  Transmission Date: 20171127
  Serious: Yes (Other)
  Sender: FDA-Public Use
  Company Number: JP-ELI_LILLY_AND_COMPANY-JP201706003087

PATIENT
  Age: 65 Year
  Sex: Female

DRUGS (5)
  1. METHADONE [Interacting]
     Active Substance: METHADONE HYDROCHLORIDE
     Indication: CANCER PAIN
     Dosage: 15 MG, DAILY
     Route: 048
     Dates: start: 20170124, end: 20170201
  2. ALPRAZOLAM. [Suspect]
     Active Substance: ALPRAZOLAM
     Indication: ANXIETY
     Dosage: 0.8 MG, DAILY
     Route: 048
     Dates: end: 20170123
  3. BROTIZOLAM [Suspect]
     Active Substance: BROTIZOLAM
     Indication: INSOMNIA
     Dosage: 0.25 MG, DAILY
     Route: 048
  4. ALPRAZOLAM. [Suspect]
     Active Substance: ALPRAZOLAM
     Indication: INSOMNIA
     Dosage: 0.4 MG, DAILY
     Route: 048
     Dates: start: 20170124
  5. ZYPREXA [Suspect]
     Active Substance: OLANZAPINE
     Indication: NAUSEA
     Dosage: 2.5 MG, DAILY
     Route: 048
     Dates: start: 20170128, end: 20170203

REACTIONS (5)
  - Respiratory depression [Recovered/Resolved]
  - Delirium [Recovered/Resolved]
  - Drug interaction [Unknown]
  - Off label use [Recovered/Resolved]
  - Somnolence [Recovered/Resolved]

NARRATIVE: CASE EVENT DATE: 20170128
